FAERS Safety Report 8602982-0 (Version None)
Quarter: 2012Q3

REPORT INFORMATION
  Report Type: 
  Country: None (occurrence: None)
  Receive Date: 20120817
  Receipt Date: 20120718
  Transmission Date: 20120928
  Serious: No
  Sender: FDA-Public Use
  Company Number: US-GLAXOSMITHKLINE-A0960282A

PATIENT
  Age: 67 Year
  Sex: Female

DRUGS (1)
  1. VOTRIENT [Suspect]
     Indication: RENAL CANCER
     Dosage: 800MG PER DAY
     Route: 065

REACTIONS (5)
  - WEIGHT DECREASED [None]
  - ABDOMINAL PAIN UPPER [None]
  - DECREASED APPETITE [None]
  - VITREOUS FLOATERS [None]
  - DIARRHOEA [None]
